FAERS Safety Report 10659457 (Version 1)
Quarter: 2014Q4

REPORT INFORMATION
  Report Type: Spontaneous
  Country: US (occurrence: None)
  Receive Date: 20141216
  Receipt Date: 20141216
  Transmission Date: 20150529
  Serious: Yes (Other)
  Sender: FDA-Public Use
  Company Number: None

PATIENT
  Age: 84 Year
  Sex: Female
  Weight: 53.52 kg

DRUGS (7)
  1. AZOPT [Suspect]
     Active Substance: BRINZOLAMIDE
     Indication: GLAUCOMA
     Dosage: 1%, 1 DROP IN LEFT EYE - PM, ONCE AT BEDTIME, DROP IN LEFT EYE
     Dates: start: 20141114, end: 20141114
  2. VITAMIN B COMPLEX [Concomitant]
     Active Substance: CYANOCOBALAMIN\DEXPANTHENOL\NIACINAMIDE\PYRIDOXINE HYDROCHLORIDE\RIBOFLAVIN 5^-PHOSPHATE SODIUM\THIAMINE HYDROCHLORIDE\VITAMIN B COMPLEX
  3. VITAMIN D [Concomitant]
     Active Substance: CHOLECALCIFEROL
  4. LEVOTHYROXINE TABLETS [Concomitant]
     Active Substance: LEVOTHYROXINE
  5. FISH OIL [Concomitant]
     Active Substance: FISH OIL
  6. ALENDRONATE SODIUM TABLETS [Concomitant]
     Active Substance: ALENDRONATE SODIUM
  7. CALCIUM [Concomitant]
     Active Substance: CALCIUM

REACTIONS (4)
  - Pain [None]
  - Muscle spasms [None]
  - Abasia [None]
  - Middle insomnia [None]

NARRATIVE: CASE EVENT DATE: 20141114
